FAERS Safety Report 21759088 (Version 1)
Quarter: 2022Q4

REPORT INFORMATION
  Report Type: Spontaneous
  Country: US (occurrence: US)
  Receive Date: 20221221
  Receipt Date: 20221221
  Transmission Date: 20230112
  Serious: No
  Sender: FDA-Public Use
  Company Number: US-ASCENDIS PHARMA-2022US000832

PATIENT

DRUGS (1)
  1. SKYTROFA [Suspect]
     Active Substance: LONAPEGSOMATROPIN-TCGD
     Indication: Growth hormone deficiency
     Dosage: 5.2 MILLIGRAM
     Route: 058
     Dates: start: 202202, end: 20220824

REACTIONS (6)
  - Erythema [Recovered/Resolved]
  - Swelling [Recovered/Resolved]
  - Skin wrinkling [Unknown]
  - Cellulitis [Unknown]
  - Pain [Unknown]
  - Hypersensitivity [Unknown]

NARRATIVE: CASE EVENT DATE: 20220801
